FAERS Safety Report 5949960-8 (Version None)
Quarter: 2008Q4

REPORT INFORMATION
  Report Type: 
  Country: None (occurrence: None)
  Receive Date: 20081112
  Receipt Date: 20081104
  Transmission Date: 20090506
  Serious: Yes (Disabling, Other)
  Sender: FDA-Public Use
  Company Number: JP-ABBOTT-08P-087-0482415-00

PATIENT
  Sex: Female
  Weight: 47 kg

DRUGS (7)
  1. SEVOFLURANE [Suspect]
     Indication: INDUCTION AND MAINTENANCE OF ANAESTHESIA
     Dosage: 2-6%
     Route: 055
     Dates: start: 20070807, end: 20070807
  2. FENTANYL [Concomitant]
     Indication: INDUCTION OF ANAESTHESIA
     Route: 042
     Dates: start: 20070807, end: 20070807
  3. VECURONIUM BROMIDE [Concomitant]
     Indication: INDUCTION OF ANAESTHESIA
     Route: 042
     Dates: start: 20070807, end: 20070807
  4. OXYGEN [Concomitant]
     Indication: MAINTENANCE OF ANAESTHESIA
     Route: 055
     Dates: start: 20070807, end: 20070807
  5. EPHEDRINE HCL 1PC SOL [Concomitant]
     Indication: ANAESTHESIA
     Dosage: 4 MG X 2
     Route: 042
     Dates: start: 20070807, end: 20070807
  6. FLURBIPROFEN AXETIL [Concomitant]
     Indication: ANAESTHESIA
     Route: 042
     Dates: start: 20070807, end: 20070807
  7. XYLOCAINE W/ EPINEPHRINE [Concomitant]
     Indication: ANAESTHESIA
     Route: 042
     Dates: start: 20070807, end: 20070807

REACTIONS (1)
  - ANGLE CLOSURE GLAUCOMA [None]
